FAERS Safety Report 25380077 (Version 2)
Quarter: 2025Q2

REPORT INFORMATION
  Report Type: Spontaneous
  Country: PL (occurrence: PL)
  Receive Date: 20250530
  Receipt Date: 20250611
  Transmission Date: 20250716
  Serious: Yes (Life-Threatening, Hospitalization, Other)
  Sender: FOUNDATION CONSUMER HEALTHCARE
  Company Number: PL-RICHTER-2025-GR-005929

PATIENT
  Age: 35 Year
  Sex: Female

DRUGS (2)
  1. LEVONORGESTREL [Suspect]
     Active Substance: LEVONORGESTREL
     Indication: Post coital contraception
     Route: 048
     Dates: start: 202504, end: 202504
  2. LEVONORGESTREL [Suspect]
     Active Substance: LEVONORGESTREL
     Indication: Contraception
     Route: 015
     Dates: start: 202410, end: 202504

REACTIONS (3)
  - Sinus tachycardia [Recovered/Resolved]
  - Ischaemic stroke [Recovered/Resolved]
  - Device expulsion [Recovered/Resolved]

NARRATIVE: CASE EVENT DATE: 20250401
